FAERS Safety Report 10348732 (Version 3)
Quarter: 2015Q1

REPORT INFORMATION
  Report Type: Spontaneous
  Country: AU (occurrence: AU)
  Receive Date: 20140729
  Receipt Date: 20150313
  Transmission Date: 20150720
  Serious: Yes (Hospitalization, Other)
  Sender: FDA-Public Use
  Company Number: AU-ABBVIE-14P-008-1266086-00

PATIENT
  Sex: Male

DRUGS (1)
  1. HUMIRA [Suspect]
     Active Substance: ADALIMUMAB
     Indication: CROHN^S DISEASE
     Route: 065

REACTIONS (17)
  - Anxiety [Unknown]
  - Ileostomy [Unknown]
  - Intestinal stenosis [Unknown]
  - Painful defaecation [Unknown]
  - Malaise [Recovered/Resolved]
  - Anhedonia [Unknown]
  - Fear [Unknown]
  - Haematochezia [Unknown]
  - Abscess [Unknown]
  - Frequent bowel movements [Unknown]
  - Fatigue [Unknown]
  - Malaise [Unknown]
  - Emotional distress [Unknown]
  - Gait disturbance [Unknown]
  - Crying [Unknown]
  - Surgery [Unknown]
  - Intestinal stenosis [Unknown]

NARRATIVE: CASE EVENT DATE: 2011
